FAERS Safety Report 24307421 (Version 1)
Quarter: 2024Q3

REPORT INFORMATION
  Report Type: Spontaneous
  Country: JP (occurrence: JP)
  Receive Date: 20240911
  Receipt Date: 20240911
  Transmission Date: 20241016
  Serious: Yes (Hospitalization, Other)
  Sender: ROCHE
  Company Number: JP-CHUGAI-2024007733

PATIENT
  Age: 39 Year
  Sex: Male

DRUGS (4)
  1. CELLCEPT [Suspect]
     Active Substance: MYCOPHENOLATE MOFETIL
     Indication: Prophylaxis against transplant rejection
     Dosage: UNK
     Route: 065
  2. VALGANCICLOVIR [Concomitant]
     Active Substance: VALGANCICLOVIR
     Route: 048
  3. EVEROLIMUS [Concomitant]
     Active Substance: EVEROLIMUS
  4. AMENAMEVIR [Concomitant]
     Active Substance: AMENAMEVIR

REACTIONS (4)
  - Cytomegalovirus gastroenteritis [Unknown]
  - Herpes zoster oticus [Unknown]
  - Renal impairment [Unknown]
  - Herpes zoster oticus [Unknown]

NARRATIVE: CASE EVENT DATE: 20230401
